FAERS Safety Report 4736771-4 (Version None)
Quarter: 2005Q3

REPORT INFORMATION
  Report Type: 
  Country: None (occurrence: None)
  Receive Date: 20050808
  Receipt Date: 20050309
  Transmission Date: 20060218
  Serious: Yes (Hospitalization)
  Sender: FDA-Public Use
  Company Number: US-MERCK-0503USA02025

PATIENT
  Age: 64 Year
  Sex: Female
  Weight: 72 kg

DRUGS (13)
  1. VIOXX [Suspect]
     Indication: BACK PAIN
     Route: 048
     Dates: start: 19990101, end: 20041001
  2. VIOXX [Suspect]
     Route: 048
  3. VIOXX [Suspect]
     Route: 048
  4. VIOXX [Suspect]
     Indication: ARTHRITIS
     Route: 048
     Dates: start: 19990101, end: 20041001
  5. VIOXX [Suspect]
     Route: 048
  6. VIOXX [Suspect]
     Route: 048
  7. ZOLOFT [Concomitant]
     Route: 065
  8. NEXIUM [Concomitant]
     Route: 065
  9. VALIUM [Concomitant]
     Route: 065
  10. HYDROCODONE BITARTRATE + ACETAMINOPHEN [Concomitant]
     Route: 065
  11. SYNTHROID [Concomitant]
     Route: 065
  12. ADVIL [Concomitant]
     Route: 065
  13. TYLENOL (CAPLET) [Concomitant]
     Route: 065

REACTIONS (11)
  - ANXIETY [None]
  - ARTHROPATHY [None]
  - CHEST PAIN [None]
  - DEPRESSION [None]
  - DIVERTICULITIS [None]
  - DYSPNOEA [None]
  - GASTROINTESTINAL DISORDER [None]
  - MYOCARDIAL INFARCTION [None]
  - POLYTRAUMATISM [None]
  - PRESCRIBED OVERDOSE [None]
  - THYROID MASS [None]
